FAERS Safety Report 14487575 (Version 6)
Quarter: 2018Q3

REPORT INFORMATION
  Report Type: Spontaneous
  Country: CA (occurrence: CA)
  Receive Date: 20180205
  Receipt Date: 20180921
  Transmission Date: 20181010
  Serious: Yes (Other)
  Sender: FDA-Public Use
  Company Number: CA-PFIZER INC-2018049320

PATIENT
  Sex: Female

DRUGS (6)
  1. NEXIUM [Suspect]
     Active Substance: ESOMEPRAZOLE MAGNESIUM
     Dosage: UNK
     Route: 048
     Dates: start: 2012
  2. RABEPRAZOLE [Suspect]
     Active Substance: RABEPRAZOLE
     Dosage: UNK
     Route: 048
     Dates: start: 2012
  3. PANTOPRAZOLE [Suspect]
     Active Substance: PANTOPRAZOLE
     Dosage: UNK
     Route: 048
     Dates: start: 2012
  4. PREVACID [Suspect]
     Active Substance: LANSOPRAZOLE
     Dosage: UNK
     Route: 048
     Dates: start: 2012
  5. PARIET [Suspect]
     Active Substance: RABEPRAZOLE SODIUM
     Dosage: UNK
     Route: 048
     Dates: start: 2012
  6. TECTA [Suspect]
     Active Substance: PANTOPRAZOLE MAGNESIUM
     Dosage: UNK
     Route: 048
     Dates: start: 2012

REACTIONS (1)
  - Kidney infection [Unknown]
